FAERS Safety Report 8182946-4 (Version None)
Quarter: 2012Q1

REPORT INFORMATION
  Report Type: 
  Country: None (occurrence: None)
  Receive Date: 20120305
  Receipt Date: 20120228
  Transmission Date: 20120608
  Serious: Yes (Death)
  Sender: FDA-Public Use
  Company Number: TR-CELGENEUS-161-CCAZA-12023063

PATIENT
  Age: 37 Year
  Sex: Female

DRUGS (9)
  1. IDARUBICIN HCL [Concomitant]
     Dosage: 8 MILLIGRAM/SQ. METER
     Route: 065
  2. NEUPOGEN [Concomitant]
     Dosage: 100 MILLIGRAM/SQ. METER
     Route: 065
  3. AZACITIDINE [Suspect]
     Dosage: 75 MILLIGRAM/SQ. METER
     Route: 058
  4. CYTARABINE [Concomitant]
     Dosage: 2 MILLIGRAM/SQ. METER
     Route: 065
  5. FLUDARABINE PHOSPHATE [Concomitant]
     Dosage: 30 MILLIGRAM/SQ. METER
     Route: 065
  6. NEUPOGEN [Concomitant]
     Dosage: 2G/MEXP2
     Route: 065
  7. IDARUBICIN HCL [Concomitant]
     Dosage: 8 MILLIGRAM/SQ. METER
     Route: 065
  8. AZACITIDINE [Suspect]
     Dosage: 100 MILLIGRAM/SQ. METER
     Route: 058
  9. CYTARABINE [Concomitant]
     Dosage: 2G/MEXP2
     Route: 065

REACTIONS (3)
  - NO THERAPEUTIC RESPONSE [None]
  - SEPSIS [None]
  - RESPIRATORY FAILURE [None]
